FAERS Safety Report 16197900 (Version 4)
Quarter: 2019Q3

REPORT INFORMATION
  Report Type: Spontaneous
  Country: US (occurrence: US)
  Receive Date: 20190415
  Receipt Date: 20190820
  Transmission Date: 20191004
  Serious: No
  Sender: FDA-Public Use
  Company Number: US-PFIZER INC-2019156208

PATIENT
  Age: 36 Year
  Sex: Male

DRUGS (3)
  1. XELJANZ [Suspect]
     Active Substance: TOFACITINIB CITRATE
     Dosage: 5 MG, 2X/DAY
     Dates: start: 20190409
  2. XELJANZ [Suspect]
     Active Substance: TOFACITINIB CITRATE
     Dosage: 10 MG, 2X/DAY
     Dates: start: 20190308, end: 20190408
  3. PREDNISONE. [Suspect]
     Active Substance: PREDNISONE
     Dosage: 20 MG, UNK

REACTIONS (3)
  - Irritability [Unknown]
  - Blood cholesterol increased [Unknown]
  - Product dose omission [Unknown]

NARRATIVE: CASE EVENT DATE: 2019
